FAERS Safety Report 19866874 (Version 1)
Quarter: 2021Q3

REPORT INFORMATION
  Report Type: Spontaneous
  Country: US (occurrence: US)
  Receive Date: 20210921
  Receipt Date: 20210921
  Transmission Date: 20211014
  Serious: No
  Sender: FDA-Public Use
  Company Number: US-BRAINTREE LABORATORIES, INC.-2021BTE00037

PATIENT
  Age: 62 Year
  Sex: Male
  Weight: 101.59 kg

DRUGS (5)
  1. FINASTERIDE. [Concomitant]
     Active Substance: FINASTERIDE
     Dosage: 5 MG, 1X/DAY
  2. LISINOPRIL. [Concomitant]
     Active Substance: LISINOPRIL
     Dosage: 20 MG, 1X/DAY
  3. SUPREP BOWEL PREP [Suspect]
     Active Substance: MAGNESIUM SULFATE\POTASSIUM SULFATE\SODIUM SULFATE
     Indication: COLONOSCOPY
     Dosage: UNK
     Dates: start: 20210113, end: 20210114
  4. MIRTAZAPINE. [Concomitant]
     Active Substance: MIRTAZAPINE
     Dosage: 15 MG, 1X/DAY AT NIGHT
  5. ALFUZOSIN HCL [Concomitant]
     Active Substance: ALFUZOSIN HYDROCHLORIDE
     Dosage: 10 MG, 1X/DAY

REACTIONS (3)
  - Nausea [Recovered/Resolved]
  - Faeces soft [Recovered/Resolved]
  - Abnormal faeces [Recovered/Resolved]

NARRATIVE: CASE EVENT DATE: 20210114
